FAERS Safety Report 6699270-9 (Version None)
Quarter: 2010Q2

REPORT INFORMATION
  Report Type: 
  Country: None (occurrence: None)
  Receive Date: 20100427
  Receipt Date: 20100415
  Transmission Date: 20101027
  Serious: Yes (Other)
  Sender: FDA-Public Use
  Company Number: CH-SANOFI-AVENTIS-2010SA022114

PATIENT
  Age: 63 Year
  Sex: Male

DRUGS (2)
  1. ALFUZOSIN HCL [Suspect]
     Route: 048
     Dates: end: 20100101
  2. SYMBICORT [Concomitant]
     Indication: ASTHMA
     Route: 048

REACTIONS (7)
  - ASTHENIA [None]
  - CRYING [None]
  - DEPRESSION [None]
  - IRRITABILITY [None]
  - MUSCULAR WEAKNESS [None]
  - MYALGIA [None]
  - NERVOUSNESS [None]
